FAERS Safety Report 8393438-1 (Version None)
Quarter: 2012Q2

REPORT INFORMATION
  Report Type: 
  Country: None (occurrence: None)
  Receive Date: 20120529
  Receipt Date: 20120411
  Transmission Date: 20120825
  Serious: Yes (Other)
  Sender: FDA-Public Use
  Company Number: CHPA2012US011016

PATIENT
  Sex: Female

DRUGS (1)
  1. NODOZ [Suspect]
     Indication: HEADACHE
     Dosage: UNK, UNK

REACTIONS (3)
  - THERAPEUTIC RESPONSE UNEXPECTED [None]
  - OFF LABEL USE [None]
  - CONVULSION [None]
